FAERS Safety Report 7258278 (Version 4)
Quarter: 2015Q2

REPORT INFORMATION
  Report Type: Report from Study
  Country: JP (occurrence: JP)
  Receive Date: 20100127
  Receipt Date: 20150429
  Transmission Date: 20150821
  Serious: Yes (Hospitalization, Other)
  Sender: FDA-Public Use
  Company Number: PHHY2010JP02512

PATIENT
  Age: 23 Year
  Sex: Female
  Weight: 65 kg

DRUGS (9)
  1. TRANSAMIN [Suspect]
     Active Substance: TRANEXAMIC ACID
     Indication: PROPHYLAXIS
     Dosage: 1000 MG, UNK
     Route: 048
     Dates: start: 20090610, end: 20090614
  2. VFEND [Concomitant]
     Active Substance: VORICONAZOLE
     Indication: PROPHYLAXIS
     Dosage: 200 MG, UNK
     Route: 048
     Dates: start: 20090528, end: 20090617
  3. LUNABELL [Concomitant]
     Active Substance: ETHINYL ESTRADIOL\NORETHINDRONE
     Indication: PROPHYLAXIS
     Dosage: 1 DF, UNK
     Route: 048
     Dates: start: 20090610, end: 20090630
  4. RED BLOOD CELLS, CONCENTRATED [Concomitant]
     Active Substance: HUMAN RED BLOOD CELL
     Indication: APLASTIC ANAEMIA
     Dosage: 2 U, TIW, EVERY 3 WEEK
     Route: 065
     Dates: start: 20090623, end: 20090716
  5. BAKTAR [Concomitant]
     Active Substance: SULFAMETHOXAZOLE\TRIMETHOPRIM
     Indication: PROPHYLAXIS
     Dosage: 480 MG, UNK
     Route: 048
     Dates: start: 20090528, end: 20090617
  6. ICL670A [Suspect]
     Active Substance: DEFERASIROX
     Indication: APLASTIC ANAEMIA
     Dosage: 625 MG, QD
     Route: 048
     Dates: start: 20090611, end: 20090701
  7. OMEPRAZON [Suspect]
     Active Substance: OMEPRAZOLE
     Indication: GASTROOESOPHAGEAL REFLUX DISEASE
     Dosage: 10 MG, UNK
     Route: 048
     Dates: start: 20090528
  8. OMEPRAL [Concomitant]
     Active Substance: OMEPRAZOLE
     Indication: GASTROOESOPHAGEAL REFLUX DISEASE
     Dosage: 20 MG, UNK
     Route: 065
     Dates: start: 20090708, end: 20090708
  9. RED BLOOD CELLS, CONCENTRATED [Concomitant]
     Active Substance: HUMAN RED BLOOD CELL
     Dosage: 2 UNITS EVERY WEEK
     Route: 065
     Dates: start: 20090721

REACTIONS (10)
  - Pyrexia [Recovering/Resolving]
  - Vomiting [Recovered/Resolved]
  - Malaise [Recovering/Resolving]
  - Alanine aminotransferase increased [Unknown]
  - Lymphocyte count decreased [Unknown]
  - Chest pain [Recovered/Resolved]
  - Hepatic function abnormal [Recovering/Resolving]
  - Blood alkaline phosphatase increased [Unknown]
  - Nausea [Recovered/Resolved]
  - Blood lactate dehydrogenase increased [Not Recovered/Not Resolved]

NARRATIVE: CASE EVENT DATE: 20090622
